FAERS Safety Report 4713176-3 (Version None)
Quarter: 2005Q3

REPORT INFORMATION
  Report Type: 
  Country: None (occurrence: None)
  Receive Date: 20050713
  Receipt Date: 20050713
  Transmission Date: 20060218
  Serious: Yes (Other)
  Sender: FDA-Public Use
  Company Number: None

PATIENT
  Sex: Female
  Weight: 65.7716 kg

DRUGS (3)
  1. MEFLOQUINE [Suspect]
     Indication: MALARIA PROPHYLAXIS
     Dosage: 250 MG Q WEEKLY
     Dates: start: 20050623, end: 20050630
  2. LUVOX [Concomitant]
  3. TRI-SPRINTEC [Concomitant]

REACTIONS (2)
  - ANXIETY [None]
  - DEPRESSION [None]
